FAERS Safety Report 7378000-1 (Version None)
Quarter: 2011Q1

REPORT INFORMATION
  Report Type: 
  Country: None (occurrence: None)
  Receive Date: 20110328
  Receipt Date: 20110315
  Transmission Date: 20110831
  Serious: Yes (Other)
  Sender: FDA-Public Use
  Company Number: PHHY2009CA46148

PATIENT
  Sex: Female

DRUGS (11)
  1. ACETAMINOPHEN [Concomitant]
     Dosage: UNK
  2. MANERIX [Concomitant]
  3. MAXERAN [Concomitant]
     Dosage: UNK
  4. ELAVIL [Concomitant]
     Dosage: 50 MG, QD
  5. APO-MOCLOBEMIDE [Concomitant]
     Dosage: 75 MG, QD
  6. EXJADE [Suspect]
     Indication: MYELODYSPLASTIC SYNDROME
     Dosage: 1000 MG, QD
     Route: 048
     Dates: start: 20080201
  7. SYNTHROID [Concomitant]
     Indication: THYROID DISORDER
     Dosage: 0.1 MG, QD
  8. EXJADE [Suspect]
     Dosage: UNK
     Route: 048
  9. ONDASETRON [Concomitant]
  10. TEMAZEPAM [Concomitant]
     Indication: DEPRESSION
     Dosage: 50 MG, QD
  11. LEVOTHYROXINE SODIUM [Concomitant]

REACTIONS (11)
  - CONSTIPATION [None]
  - THROAT TIGHTNESS [None]
  - SERUM FERRITIN INCREASED [None]
  - PHARYNGITIS [None]
  - DRY MOUTH [None]
  - SWOLLEN TONGUE [None]
  - OROPHARYNGEAL PAIN [None]
  - GASTRIC POLYPS [None]
  - THROAT IRRITATION [None]
  - NAUSEA [None]
  - DYSPHAGIA [None]
